FAERS Safety Report 5230418-9 (Version None)
Quarter: 2007Q1

REPORT INFORMATION
  Report Type: 
  Country: None (occurrence: None)
  Receive Date: 20070206
  Receipt Date: 20070123
  Transmission Date: 20070707
  Serious: Yes (Hospitalization, Other)
  Sender: FDA-Public Use
  Company Number: BR-ELI_LILLY_AND_COMPANY-BR200701004584

PATIENT
  Age: 86 Year
  Sex: Female
  Weight: 70 kg

DRUGS (14)
  1. FORTEO [Suspect]
     Indication: OSTEOPOROSIS
     Dosage: 20 UG, DAILY (1/D)
     Route: 058
     Dates: start: 20060701
  2. HUMULIN N [Suspect]
     Indication: DIABETES MELLITUS
     Dosage: 42 IU, EACH MORNING
     Route: 058
  3. HUMULIN N [Suspect]
     Dosage: 12 IU, EACH EVENING
     Route: 058
  4. HUMULIN R [Suspect]
     Indication: DIABETES MELLITUS
     Dosage: 4 IU, EACH MORNING
     Route: 058
  5. APROZIDE [Concomitant]
     Indication: HYPERTENSION
     Dosage: 150 MG, 2/D
     Route: 048
  6. GLUCOSAMINE W/CHONDROITIN SULFATE [Concomitant]
     Indication: OSTEOPOROSIS
     Dosage: 400 MG, 2/D
     Route: 048
  7. CAPTOPRIL [Concomitant]
     Indication: HYPERTENSION
     Dosage: 25 MG, AS NEEDED
     Route: 060
  8. CORDARONE [Concomitant]
     Indication: HYPERTENSION
     Dosage: 2.5 MG, DAILY (1/D)
     Route: 048
  9. DIGOXIN [Concomitant]
     Indication: HYPERTENSION
     Dosage: 0.25 MG, DAILY (1/D)
     Route: 048
  10. DIACEREIN [Concomitant]
     Indication: VITAMIN SUPPLEMENTATION
     Dosage: 50 MG, DAILY (1/D)
     Route: 048
  11. HIDANTAL [Concomitant]
     Indication: DIABETES MELLITUS
     Dosage: 100 MG, DAILY (1/D)
     Route: 048
  12. DIOSMIN W/HESPERIDIN [Concomitant]
     Dosage: 450 MG, 2/D
     Route: 048
  13. PARIET [Concomitant]
     Indication: GASTRIC DISORDER
     Dosage: 20 MG, DAILY (1/D)
     Route: 048
  14. LEVOTHYROXINE SODIUM [Concomitant]
     Dosage: 50 MG, DAILY (1/D)
     Route: 048

REACTIONS (5)
  - CARDIOVASCULAR DISORDER [None]
  - CEREBROVASCULAR ACCIDENT [None]
  - HEMIPLEGIA [None]
  - ISCHAEMIA [None]
  - MUTISM [None]
